FAERS Safety Report 25973263 (Version 2)
Quarter: 2025Q4

REPORT INFORMATION
  Report Type: Spontaneous
  Country: EU (occurrence: EU)
  Receive Date: 20251029
  Receipt Date: 20251125
  Transmission Date: 20260117
  Serious: Yes (Death, Hospitalization, Other)
  Sender: BAUSCH AND LOMB
  Company Number: None

PATIENT
  Sex: Female

DRUGS (9)
  1. AZATHIOPRINE [Suspect]
     Active Substance: AZATHIOPRINE
     Indication: Autoimmune lymphoproliferative syndrome
     Route: 065
  2. CYCLOPHOSPHAMIDE [Suspect]
     Active Substance: CYCLOPHOSPHAMIDE
     Indication: Autoimmune lymphoproliferative syndrome
     Route: 065
  3. MYCOPHENOLATE MOFETIL [Suspect]
     Active Substance: MYCOPHENOLATE MOFETIL
     Indication: Autoimmune lymphoproliferative syndrome
     Route: 065
  4. RITUXIMAB [Suspect]
     Active Substance: RITUXIMAB
     Indication: Autoimmune lymphoproliferative syndrome
     Route: 065
  5. SIROLIMUS [Suspect]
     Active Substance: SIROLIMUS
     Indication: Autoimmune lymphoproliferative syndrome
     Dosage: UNK
     Route: 065
  6. VINCRISTINE [Suspect]
     Active Substance: VINCRISTINE
     Indication: Autoimmune lymphoproliferative syndrome
     Route: 065
  7. TACROLIMUS [Suspect]
     Active Substance: TACROLIMUS
     Indication: Autoimmune lymphoproliferative syndrome
     Route: 065
  8. APIXABAN [Concomitant]
     Active Substance: APIXABAN
     Indication: Prophylaxis
  9. ERYTHROPOIETIN [Concomitant]
     Active Substance: ERYTHROPOIETIN
     Indication: Autoimmune haemolytic anaemia

REACTIONS (6)
  - Multiple organ dysfunction syndrome [Fatal]
  - Cardiac ventricular thrombosis [Fatal]
  - Inflammation [Fatal]
  - Streptococcal sepsis [Unknown]
  - Septic shock [Unknown]
  - Therapy partial responder [Unknown]
